APPROVED DRUG PRODUCT: XIBROM
Active Ingredient: BROMFENAC SODIUM
Strength: EQ 0.09% ACID **Federal Register determination that product was not discontinued or withdrawn for safety or effectiveness reasons**
Dosage Form/Route: SOLUTION/DROPS;OPHTHALMIC
Application: N021664 | Product #001
Applicant: BAUSCH AND LOMB INC
Approved: Mar 24, 2005 | RLD: Yes | RS: No | Type: DISCN